FAERS Safety Report 4723804-4 (Version None)
Quarter: 2005Q3

REPORT INFORMATION
  Report Type: 
  Country: None (occurrence: None)
  Receive Date: 20050725
  Receipt Date: 20050422
  Transmission Date: 20060218
  Serious: Yes (Other)
  Sender: FDA-Public Use
  Company Number: PHBS2005CA05894

PATIENT
  Age: 62 Year
  Sex: Female

DRUGS (5)
  1. AREDIA [Suspect]
     Indication: OSTEOPOROSIS
     Dosage: 30 MG, Q3MO
     Dates: start: 20040301
  2. NEXIUM [Concomitant]
  3. CHARDON-MARIE [Concomitant]
  4. EVISTA [Concomitant]
     Dosage: 60 MG/D
  5. CALCIUM GLUCONATE [Concomitant]
     Dosage: 500 MG, BID
     Route: 048

REACTIONS (4)
  - LIVER DISORDER [None]
  - NAUSEA [None]
  - OCULAR ICTERUS [None]
  - STOMACH DISCOMFORT [None]
